FAERS Safety Report 20633001 (Version 1)
Quarter: 2022Q1

REPORT INFORMATION
  Report Type: Spontaneous
  Country: GF (occurrence: GF)
  Receive Date: 20220324
  Receipt Date: 20220324
  Transmission Date: 20220423
  Serious: Yes (Hospitalization, Other)
  Sender: FDA-Public Use
  Company Number: GF-STRIDES ARCOLAB LIMITED-2022SP002943

PATIENT
  Age: 50 Year
  Sex: Male

DRUGS (12)
  1. PREDNISOLONE [Suspect]
     Active Substance: PREDNISOLONE
     Indication: Type 2 lepra reaction
     Dosage: 1 MILLIGRAM PER KILOGRAM/ PER DAY
     Route: 065
  2. PREDNISOLONE [Suspect]
     Active Substance: PREDNISOLONE
     Indication: Type 1 lepra reaction
     Dosage: UNK, PER DAY, HIGH-DOSE PREDNISOLONE
     Route: 065
  3. PREDNISOLONE [Suspect]
     Active Substance: PREDNISOLONE
     Dosage: UP TO 120MG DAILY
     Route: 065
  4. PREDNISOLONE [Suspect]
     Active Substance: PREDNISOLONE
     Dosage: 20 MILLIGRAM/PER DAY, TAPERED
     Route: 065
     Dates: start: 202004
  5. PREDNISOLONE [Suspect]
     Active Substance: PREDNISOLONE
     Dosage: 100 MILLIGRAM/ PER DAY
     Route: 065
  6. PENTOXIFYLLINE [Concomitant]
     Active Substance: PENTOXIFYLLINE
     Indication: Type 2 lepra reaction
     Dosage: 400 MILLIGRAM, BID
     Route: 065
  7. RIFAMPIN [Concomitant]
     Active Substance: RIFAMPIN
     Indication: Type 2 lepra reaction
     Dosage: UNK
     Route: 065
  8. RIFAMPIN [Concomitant]
     Active Substance: RIFAMPIN
     Dosage: 600 MILLIGRAM, ONCE A MONTH
     Route: 065
  9. CLOFAZIMINE [Concomitant]
     Active Substance: CLOFAZIMINE
     Indication: Type 2 lepra reaction
     Dosage: UNK
     Route: 065
  10. CLOFAZIMINE [Concomitant]
     Active Substance: CLOFAZIMINE
     Dosage: 100 MILLIGRAM/ PER DAY
     Route: 065
  11. DAPSONE [Concomitant]
     Active Substance: DAPSONE
     Indication: Type 2 lepra reaction
     Dosage: UNK
     Route: 065
  12. DAPSONE [Concomitant]
     Active Substance: DAPSONE
     Dosage: 100 MILLIGRAM/PER DAY
     Route: 065

REACTIONS (6)
  - Chest pain [Unknown]
  - Medication error [Unknown]
  - Intentional product misuse [Unknown]
  - Steroid dependence [Recovered/Resolved]
  - Influenza [Unknown]
  - Off label use [Unknown]
